FAERS Safety Report 24590119 (Version 2)
Quarter: 2024Q4

REPORT INFORMATION
  Report Type: Report from Study
  Country: US (occurrence: US)
  Receive Date: 20241107
  Receipt Date: 20241217
  Transmission Date: 20250114
  Serious: Yes (Other)
  Sender: TAIHO ONCOLOGY INC
  Company Number: US-TAIHOP-2024-010443

PATIENT
  Age: 68 Year
  Sex: Female
  Weight: 46.8 kg

DRUGS (1)
  1. LONSURF [Suspect]
     Active Substance: TIPIRACIL HYDROCHLORIDE\TRIFLURIDINE
     Indication: Colon cancer
     Dosage: 15MG - 40CT/ TAKE 4 TABLETS IN THE MORNING AND 3 TABLETS IN THE EVENING ON DAYS D1-D5 AND D8-D12 EVE
     Route: 048
     Dates: start: 20240919

REACTIONS (6)
  - Thrombosis [Unknown]
  - Urinary tract infection [Unknown]
  - Sciatica [Unknown]
  - Red blood cell count decreased [Unknown]
  - White blood cell count decreased [Unknown]
  - Muscle spasms [Unknown]
